FAERS Safety Report 9964090 (Version 1)
Quarter: 2014Q1

REPORT INFORMATION
  Report Type: Spontaneous
  Country: DE (occurrence: DE)
  Receive Date: 20140305
  Receipt Date: 20140305
  Transmission Date: 20141002
  Serious: Yes (Other)
  Sender: FDA-Public Use
  Company Number: DE-GLAXOSMITHKLINE-D0082412A

PATIENT
  Age: 34 Year
  Sex: Female

DRUGS (1)
  1. NARAMIG [Suspect]
     Indication: MIGRAINE
     Dosage: 2.5MG PER DAY
     Route: 048
     Dates: start: 20010625

REACTIONS (1)
  - Tinnitus [Not Recovered/Not Resolved]
